FAERS Safety Report 22588836 (Version 1)
Quarter: 2023Q2

REPORT INFORMATION
  Report Type: Spontaneous
  Country: US (occurrence: None)
  Receive Date: 20230608
  Receipt Date: 20230608
  Transmission Date: 20230721
  Serious: Yes (Death)
  Sender: FDA-Public Use
  Company Number: None

PATIENT
  Age: 64 Year
  Sex: Female
  Weight: 125 kg

DRUGS (1)
  1. ZARXIO [Suspect]
     Active Substance: FILGRASTIM-SNDZ
     Indication: Plasma cell myeloma
     Dosage: 480MG ONCE WEEKLY SUBCUTANEOUSLY
     Route: 058
     Dates: start: 20220617, end: 20230601

REACTIONS (1)
  - Septic shock [None]

NARRATIVE: CASE EVENT DATE: 20230601
